FAERS Safety Report 17589606 (Version 1)
Quarter: 2020Q1

REPORT INFORMATION
  Report Type: Spontaneous
  Country: US (occurrence: US)
  Receive Date: 20200324
  Receipt Date: 20200324
  Transmission Date: 20200409
  Serious: Yes (Hospitalization)
  Sender: FDA-Public Use
  Company Number: None

PATIENT
  Age: 49 Year
  Sex: Female
  Weight: 66.9 kg

DRUGS (2)
  1. ATEZOLIZUMAB. [Suspect]
     Active Substance: ATEZOLIZUMAB
     Indication: BREAST CANCER METASTATIC
     Route: 042
     Dates: start: 20200311, end: 20200311
  2. CARBOPLATIN. [Suspect]
     Active Substance: CARBOPLATIN
     Indication: BREAST CANCER METASTATIC
     Route: 042
     Dates: start: 20200311, end: 20200311

REACTIONS (8)
  - Cough [None]
  - Human metapneumovirus test positive [None]
  - Rhinorrhoea [None]
  - Pneumonia [None]
  - Syncope [None]
  - Vomiting [None]
  - Pyrexia [None]
  - Head injury [None]

NARRATIVE: CASE EVENT DATE: 20200324
